FAERS Safety Report 13235441 (Version 1)
Quarter: 2017Q1

REPORT INFORMATION
  Report Type: Spontaneous
  Country: JP (occurrence: JP)
  Receive Date: 20170215
  Receipt Date: 20170215
  Transmission Date: 20170428
  Serious: Yes (Other)
  Sender: FDA-Public Use
  Company Number: JP-PFIZER INC-2017061500

PATIENT
  Age: 47 Year
  Sex: Female

DRUGS (2)
  1. FOSPHENYTOIN [Interacting]
     Active Substance: FOSPHENYTOIN\FOSPHENYTOIN SODIUM
     Dosage: UNK
     Route: 042
  2. METHOTREXATE SODIUM. [Suspect]
     Active Substance: METHOTREXATE SODIUM
     Dosage: 10 MG, UNK
     Route: 037

REACTIONS (2)
  - Platelet count decreased [Unknown]
  - Drug interaction [Unknown]
